FAERS Safety Report 7532866-0 (Version None)
Quarter: 2011Q2

REPORT INFORMATION
  Report Type: 
  Country: None (occurrence: None)
  Receive Date: 20110608
  Receipt Date: 20110602
  Transmission Date: 20111010
  Serious: Yes (Hospitalization, Other)
  Sender: FDA-Public Use
  Company Number: JP-PFIZER INC-2011016151

PATIENT
  Age: 41 Year
  Sex: Female
  Weight: 52.6 kg

DRUGS (18)
  1. ALENDRONATE SODIUM [Suspect]
     Indication: OSTEOPOROSIS
     Dosage: 35 MG, WEEKLY
     Dates: start: 20100227, end: 20110124
  2. PREDNISOLONE [Concomitant]
     Dosage: 20MG, 15MG AND 15MG
     Route: 048
     Dates: start: 20110113, end: 20110115
  3. LANSOPRAZOLE [Suspect]
     Indication: PROPHYLAXIS
  4. ZANTAC [Concomitant]
     Indication: PROPHYLAXIS
  5. PREDNISOLONE [Concomitant]
     Dosage: 15MG,10MG AND 15MG
     Route: 048
     Dates: start: 20110119, end: 20110121
  6. PREDNISOLONE [Concomitant]
     Dosage: 20 MG, 3X/DAY
     Route: 048
     Dates: start: 20110107, end: 20110109
  7. PREDNISOLONE [Concomitant]
     Dosage: 20MG, 15MG AND 20 MG
     Route: 048
     Dates: start: 20110110, end: 20110112
  8. ASPIRIN [Suspect]
     Indication: TRANSIENT ISCHAEMIC ATTACK
     Dosage: 100 MG, 1X/DAY
     Dates: start: 20110111, end: 20110224
  9. MAGNESIUM SULFATE [Concomitant]
     Indication: CONSTIPATION
     Dosage: 330 MG, 3X/DAY
     Route: 048
     Dates: start: 20100217
  10. FUNGIZONE [Concomitant]
     Indication: ORAL CANDIDIASIS
     Dosage: 400 MG, 3X/DAY
     Dates: start: 20101227
  11. PREDNISOLONE [Concomitant]
     Dosage: 15 MG, 3X/DAY
     Route: 048
     Dates: start: 20110116, end: 20110118
  12. PREDNISOLONE [Concomitant]
     Dosage: 15MG, 10MG AND 10MG
     Route: 048
     Dates: start: 20110122
  13. LIPITOR [Suspect]
     Indication: HYPERLIPIDAEMIA
     Dosage: 10 MG, 1X/DAY
     Route: 048
     Dates: start: 20100227, end: 20110122
  14. LANSOPRAZOLE [Suspect]
     Indication: GASTRITIS
     Dosage: 30 MG DAILY
     Route: 048
     Dates: start: 20101224, end: 20110124
  15. PREDNISOLONE [Concomitant]
     Indication: STILL'S DISEASE ADULT ONSET
     Dosage: 15 MG, 3X/DAY
     Route: 048
     Dates: start: 20101217, end: 20101220
  16. PREDNISOLONE [Concomitant]
     Dosage: 25 MG, 3X/DAY
     Route: 041
     Dates: start: 20110104, end: 20110106
  17. ZANTAC [Concomitant]
     Indication: GASTRITIS
     Dosage: 150 MG, 2X/DAY
     Route: 048
     Dates: start: 20101217, end: 20101223
  18. PREDNISOLONE [Concomitant]
     Dosage: 30 MG, 3X/DAY
     Route: 041
     Dates: start: 20101221, end: 20110101

REACTIONS (2)
  - AGRANULOCYTOSIS [None]
  - CELLULITIS [None]
